FAERS Safety Report 19178222 (Version 1)
Quarter: 2021Q2

REPORT INFORMATION
  Report Type: Spontaneous
  Country: US (occurrence: US)
  Receive Date: 20210423
  Receipt Date: 20210423
  Transmission Date: 20210717
  Serious: Yes (Death)
  Sender: FDA-Public Use
  Company Number: None

PATIENT
  Age: 66 Year
  Sex: Male

DRUGS (1)
  1. LUCENTIS [Suspect]
     Active Substance: RANIBIZUMAB
     Dosage: DOSAGE OR AMOUNT: 0/3MG Q 4 WEEKS?FREQUENCY: OTHER?ROUTE: OTHER
     Route: 050
     Dates: start: 20200504, end: 20210224

REACTIONS (1)
  - Death [None]

NARRATIVE: CASE EVENT DATE: 20210409
